FAERS Safety Report 19176528 (Version 2)
Quarter: 2021Q2

REPORT INFORMATION
  Report Type: Spontaneous
  Country: US (occurrence: US)
  Receive Date: 20210424
  Receipt Date: 20210429
  Transmission Date: 20210717
  Serious: No
  Sender: FDA-Public Use
  Company Number: US-BRISTOL-MYERS SQUIBB COMPANY-BMS-2021-039021

PATIENT
  Age: 78 Year
  Sex: Female
  Weight: 62.14 kg

DRUGS (3)
  1. ELIQUIS [Suspect]
     Active Substance: APIXABAN
     Indication: CEREBROVASCULAR ACCIDENT PROPHYLAXIS
     Dosage: 5 MILLIGRAM, BID
     Route: 048
     Dates: start: 2016
  2. VITAMINS NOS [Concomitant]
     Active Substance: VITAMINS
     Indication: PRODUCT USED FOR UNKNOWN INDICATION
     Dosage: UNK
     Route: 065
  3. DILTIAZEM. [Concomitant]
     Active Substance: DILTIAZEM
     Indication: ATRIAL FIBRILLATION
     Dosage: 120 MILLIGRAM, QD
     Route: 048

REACTIONS (15)
  - Dry mouth [Unknown]
  - Dysgeusia [Unknown]
  - Dizziness [Unknown]
  - Feeling hot [Unknown]
  - Blood pressure increased [Unknown]
  - Chills [Unknown]
  - Nausea [Unknown]
  - Pain [Unknown]
  - Discomfort [Unknown]
  - Hypoaesthesia [Unknown]
  - Eructation [Unknown]
  - Labile hypertension [Unknown]
  - Burning sensation [Unknown]
  - Peripheral coldness [Unknown]
  - Speech disorder [Unknown]

NARRATIVE: CASE EVENT DATE: 20210321
